FAERS Safety Report 7901501-1 (Version None)
Quarter: 2011Q4

REPORT INFORMATION
  Report Type: 
  Country: None (occurrence: None)
  Receive Date: 20111108
  Receipt Date: 20111101
  Transmission Date: 20120403
  Serious: Yes (Hospitalization, Other)
  Sender: FDA-Public Use
  Company Number: US-AMGEN-USASP2011056764

PATIENT
  Age: 24 Year
  Sex: Female
  Weight: 129.25 kg

DRUGS (2)
  1. PROCRIT [Suspect]
     Dosage: 15000 IU, 3 TIMES/WK
     Route: 058
     Dates: start: 20110922, end: 20110101
  2. PROCRIT [Suspect]
     Indication: SYNCOPE
     Dosage: 10000 IU, 3 TIMES/WK
     Route: 058
     Dates: start: 20110210, end: 20110922

REACTIONS (7)
  - HAEMATOCRIT DECREASED [None]
  - ABDOMINAL PAIN [None]
  - DEVICE MALFUNCTION [None]
  - CHOLECYSTECTOMY [None]
  - HERNIA [None]
  - POST PROCEDURAL COMPLICATION [None]
  - EXPIRED DRUG ADMINISTERED [None]
